FAERS Safety Report 4334157-8 (Version None)
Quarter: 2004Q2

REPORT INFORMATION
  Report Type: 
  Country: None (occurrence: None)
  Receive Date: 20040405
  Receipt Date: 20040323
  Transmission Date: 20050107
  Serious: Yes (Hospitalization)
  Sender: FDA-Public Use
  Company Number: US070320

PATIENT
  Sex: 0

DRUGS (2)
  1. ETANERCEPT [Suspect]
     Indication: PANCREATIC CARCINOMA
     Dates: start: 20040219
  2. GEMCITABINE HCL [Suspect]
     Dates: start: 20040226

REACTIONS (1)
  - FEBRILE NEUTROPENIA [None]
